FAERS Safety Report 8900699 (Version 1)
Quarter: 2012Q4

REPORT INFORMATION
  Report Type: 
  Country: CA (occurrence: CA)
  Receive Date: 20121109
  Receipt Date: 20121109
  Transmission Date: 20130627
  Serious: Yes (Hospitalization)
  Sender: FDA-Public Use
  Company Number: PHHO2005CA08656

PATIENT
  Sex: Female

DRUGS (3)
  1. SANDOSTATIN LAR (PATIENT BASIS) [Suspect]
     Indication: SHORT-BOWEL SYNDROME
     Dosage: 30 mg,
     Dates: start: 20011220
  2. COUMADIN [Concomitant]
  3. CODEINE [Concomitant]

REACTIONS (6)
  - Device related infection [Unknown]
  - Hypotension [Unknown]
  - Diarrhoea [Unknown]
  - Vomiting [Unknown]
  - Nausea [Unknown]
  - Fatigue [Unknown]
